FAERS Safety Report 17735974 (Version 1)
Quarter: 2020Q2

REPORT INFORMATION
  Report Type: Spontaneous
  Country: FR (occurrence: FR)
  Receive Date: 20200501
  Receipt Date: 20200501
  Transmission Date: 20200714
  Serious: Yes (Hospitalization)
  Sender: FDA-Public Use
  Company Number: FR-SAMSUNG BIOEPIS-SB-2020-14996

PATIENT
  Age: 78 Year
  Sex: Female
  Weight: 80 kg

DRUGS (3)
  1. PERJETA [Suspect]
     Active Substance: PERTUZUMAB
     Indication: BREAST CANCER RECURRENT
     Route: 041
     Dates: start: 20191014, end: 20191105
  2. ONTRUZANT [Suspect]
     Active Substance: TRASTUZUMAB-DTTB
     Indication: BREAST CANCER RECURRENT
     Route: 041
     Dates: start: 20191014, end: 20191105
  3. PACLITAXEL ACCORD [Suspect]
     Active Substance: PACLITAXEL
     Indication: BREAST CANCER RECURRENT
     Route: 041
     Dates: start: 20191014, end: 20191112

REACTIONS (1)
  - Skin exfoliation [Recovering/Resolving]

NARRATIVE: CASE EVENT DATE: 20191118
